FAERS Safety Report 24535016 (Version 1)
Quarter: 2024Q4

REPORT INFORMATION
  Report Type: Spontaneous
  Country: US (occurrence: US)
  Receive Date: 20241022
  Receipt Date: 20241022
  Transmission Date: 20250115
  Serious: No
  Sender: SCIEGEN PHARMACEUTICALS INC
  Company Number: US-SCIEGENP-2024SCSPO00378

PATIENT
  Sex: Male

DRUGS (4)
  1. CARBIDOPA AND LEVODOPA [Suspect]
     Active Substance: CARBIDOPA\LEVODOPA
     Indication: Parkinson^s disease
     Route: 065
     Dates: start: 20240915, end: 20240923
  2. ROPINIROLE [Concomitant]
     Active Substance: ROPINIROLE
     Indication: Parkinson^s disease
     Dosage: EXTENDED RELEASE
     Route: 065
  3. SELGIN [Concomitant]
     Indication: Parkinson^s disease
     Route: 065
  4. Carbidopa Levodopa controlled release [Concomitant]
     Indication: Parkinson^s disease
     Dosage: 50 MG/200 MG CONTROLLED RELEASE  (AT NIGHT)
     Route: 065

REACTIONS (1)
  - Drug ineffective [Unknown]
